FAERS Safety Report 16966909 (Version 1)
Quarter: 2019Q4

REPORT INFORMATION
  Report Type: Spontaneous
  Country: US (occurrence: US)
  Receive Date: 20190911
  Receipt Date: 20190911
  Transmission Date: 20200122
  Serious: Yes (Hospitalization)
  Sender: FDA-Public Use
  Company Number: None

PATIENT
  Age: 46 Year
  Sex: Female

DRUGS (15)
  1. RAMITIDINE [Concomitant]
  2. SODIUM BICARBONATE. [Concomitant]
     Active Substance: SODIUM BICARBONATE
  3. MAGNESIUM-OX [Concomitant]
  4. MYCOPHENOLATE 250MG [Suspect]
     Active Substance: MYCOPHENOLIC ACID
     Indication: ORGAN TRANSPLANT
     Route: 048
     Dates: start: 20170531, end: 20190812
  5. MULTIVITAMIN [Concomitant]
     Active Substance: VITAMINS
  6. MIRTANAPINE [Concomitant]
  7. ELIQUIS [Concomitant]
     Active Substance: APIXABAN
  8. ALPRAZOLAM. [Concomitant]
     Active Substance: ALPRAZOLAM
  9. LINZESS [Concomitant]
     Active Substance: LINACLOTIDE
  10. LOSARTAN. [Concomitant]
     Active Substance: LOSARTAN
  11. HYDROMORPHONE [Concomitant]
     Active Substance: HYDROMORPHONE
  12. MECLIZINE [Concomitant]
     Active Substance: MECLIZINE HYDROCHLORIDE
  13. OMPRAZOLE [Concomitant]
     Active Substance: OMEPRAZOLE
  14. HYDROCO/APAP [Concomitant]
     Active Substance: ACETAMINOPHEN\HYDROCODONE
  15. ONDANSETRON [Concomitant]
     Active Substance: ONDANSETRON

REACTIONS (1)
  - Hospitalisation [None]

NARRATIVE: CASE EVENT DATE: 20190908
